FAERS Safety Report 23001867 (Version 2)
Quarter: 2023Q4

REPORT INFORMATION
  Report Type: Report from Study
  Country: CA (occurrence: CA)
  Receive Date: 20230928
  Receipt Date: 20231023
  Transmission Date: 20240110
  Serious: Yes (Death, Other)
  Sender: FDA-Public Use
  Company Number: CA-AstraZeneca-2023A216730

PATIENT
  Age: 61 Year
  Sex: Female

DRUGS (1)
  1. ENHERTU [Suspect]
     Active Substance: FAM-TRASTUZUMAB DERUXTECAN-NXKI
     Indication: Breast cancer female
     Dosage: 5.4 MG/KG, ONCE EVERY 3 WK
     Route: 042
     Dates: start: 20230602

REACTIONS (1)
  - Death [Fatal]

NARRATIVE: CASE EVENT DATE: 20230921
